FAERS Safety Report 19348216 (Version 1)
Quarter: 2021Q2

REPORT INFORMATION
  Report Type: Spontaneous
  Country: US (occurrence: US)
  Receive Date: 20210531
  Receipt Date: 20210531
  Transmission Date: 20210717
  Serious: No
  Sender: FDA-Public Use
  Company Number: US-PURDUE-USA-2020-0191759

PATIENT

DRUGS (1)
  1. OXYCONTIN [Suspect]
     Active Substance: OXYCODONE HYDROCHLORIDE
     Indication: PAIN
     Dosage: UNK
     Route: 048

REACTIONS (7)
  - Unevaluable event [Unknown]
  - Impaired work ability [Unknown]
  - Mental disorder [Unknown]
  - Disturbance in attention [Unknown]
  - General physical condition abnormal [Unknown]
  - Impaired quality of life [Unknown]
  - Lethargy [Unknown]
